FAERS Safety Report 19393310 (Version 1)
Quarter: 2021Q2

REPORT INFORMATION
  Report Type: Spontaneous
  Country: FR (occurrence: FR)
  Receive Date: 20210609
  Receipt Date: 20210609
  Transmission Date: 20210717
  Serious: Yes (Other)
  Sender: FDA-Public Use
  Company Number: FR-SA-2021SA187913

PATIENT
  Age: 67 Year
  Sex: Male
  Weight: 80 kg

DRUGS (9)
  1. PROPOFOL. [Suspect]
     Active Substance: PROPOFOL
     Indication: SEDATION
     Dosage: 200 MG, QD
     Route: 042
     Dates: start: 20210414, end: 20210511
  2. LOVENOX [Suspect]
     Active Substance: ENOXAPARIN SODIUM
     Indication: THROMBOSIS PROPHYLAXIS
     Dosage: 0.8 ML, Q12H
     Route: 058
     Dates: start: 20210414
  3. URAPIDIL [Suspect]
     Active Substance: URAPIDIL
     Indication: HYPERTENSION
     Dosage: 232 MG, 13 MG / HOUR 1ST ADMINISTRATION TIME: D4
     Route: 042
     Dates: start: 20210426, end: 20210430
  4. PIPERACILLIN SODIUM/TAZOBACTAM SODIUM [Suspect]
     Active Substance: PIPERACILLIN SODIUM\TAZOBACTAM SODIUM
     Indication: INFECTION
     Dosage: 4 G, QD
     Route: 042
     Dates: start: 20210428, end: 20210429
  5. NICARDIPINE [Suspect]
     Active Substance: NICARDIPINE
     Indication: HYPERTENSION
     Dosage: 50 MG, QD
     Route: 042
     Dates: start: 20210418, end: 20210418
  6. MIDAZOLAM. [Suspect]
     Active Substance: MIDAZOLAM
     Indication: SEDATION
     Dosage: 25 MG, QH
     Route: 042
     Dates: start: 20210419, end: 20210509
  7. AMLODIPINE [Suspect]
     Active Substance: AMLODIPINE BESYLATE
     Indication: HYPERTENSION
     Dosage: 10 MG, QD
     Route: 048
     Dates: start: 20210510, end: 20210511
  8. FUROSEMIDE. [Suspect]
     Active Substance: FUROSEMIDE
     Indication: HYPERTENSION
     Dosage: 40 MG, QD
     Route: 042
     Dates: start: 20210426, end: 20210430
  9. SUFENTANIL [Suspect]
     Active Substance: SUFENTANIL
     Indication: SEDATION
     Dosage: 10 UG, QH
     Route: 042
     Dates: start: 20210414, end: 20210524

REACTIONS (1)
  - Drug reaction with eosinophilia and systemic symptoms [Recovering/Resolving]

NARRATIVE: CASE EVENT DATE: 20210429
